FAERS Safety Report 24815174 (Version 3)
Quarter: 2025Q1

REPORT INFORMATION
  Report Type: Spontaneous
  Country: CA (occurrence: CA)
  Receive Date: 20250107
  Receipt Date: 20250305
  Transmission Date: 20250408
  Serious: Yes (Other)
  Sender: PFIZER
  Company Number: CA-PFIZER INC-202500001319

PATIENT
  Age: 49 Year
  Sex: Female

DRUGS (1)
  1. ABRILADA [Suspect]
     Active Substance: ADALIMUMAB-AFZB
     Indication: Colitis ulcerative
     Dosage: 40 MG, WEEKLY (EVERY TUESDAY)
     Route: 058
     Dates: start: 20240828

REACTIONS (1)
  - Parotidectomy [Unknown]

NARRATIVE: CASE EVENT DATE: 20241220
